FAERS Safety Report 14061140 (Version 3)
Quarter: 2017Q4

REPORT INFORMATION
  Report Type: Spontaneous
  Country: GB (occurrence: GB)
  Receive Date: 20171008
  Receipt Date: 20171102
  Transmission Date: 20180321
  Serious: Yes (Hospitalization, Other)
  Sender: FDA-Public Use
  Company Number: GB-MYLANLABS-2017M1061324

PATIENT
  Age: 76 Year
  Sex: Female

DRUGS (5)
  1. RISPERIDONE. [Suspect]
     Active Substance: RISPERIDONE
     Indication: VASCULAR DEMENTIA
     Dosage: .25 MILLIGRAM DAILY
     Route: 065
     Dates: start: 20170821
  2. PARACETAMOL [Concomitant]
     Active Substance: ACETAMINOPHEN
     Route: 065
  3. DIAZEPAM. [Concomitant]
     Active Substance: DIAZEPAM
     Dosage: UNK
     Route: 065
     Dates: start: 20170825
  4. RISPERIDONE. [Suspect]
     Active Substance: RISPERIDONE
     Indication: PSYCHOTIC DISORDER
  5. RISPERIDONE. [Suspect]
     Active Substance: RISPERIDONE
     Indication: DEMENTIA ALZHEIMER^S TYPE
     Dosage: UNK
     Route: 065
     Dates: start: 201708

REACTIONS (17)
  - Headache [Unknown]
  - Neck injury [Unknown]
  - Poor quality sleep [Unknown]
  - Fatigue [Unknown]
  - Speech disorder [Unknown]
  - Back pain [Unknown]
  - Pneumonia [Unknown]
  - Blood pressure decreased [Unknown]
  - Aggression [Unknown]
  - Fluid intake reduced [Unknown]
  - Hallucination [Unknown]
  - Gait disturbance [Unknown]
  - Fall [Unknown]
  - Nausea [Unknown]
  - Feeling abnormal [Unknown]
  - Eating disorder [Unknown]
  - Head injury [Unknown]

NARRATIVE: CASE EVENT DATE: 20170830
